FAERS Safety Report 8806409 (Version 1)
Quarter: 2012Q4

REPORT INFORMATION
  Report Type: Spontaneous
  Country: US (occurrence: None)
  Receive Date: 20120918
  Receipt Date: 20120918
  Transmission Date: 20130627
  Serious: Yes (Other)
  Sender: FDA-Public Use
  Company Number: DSA_58031_2012

PATIENT
  Age: 10 Year
  Sex: Female

DRUGS (2)
  1. XENAZINE 25 MG (NOT SPECIFIED) [Suspect]
     Indication: PRODUCT USED FOR UNKNOWN INDICATION
     Route: 048
     Dates: start: 20120511, end: 2012
  2. XENAZINE 25 MG (NOT SPECIFIED) [Suspect]
     Indication: PRODUCT USED FOR UNKNOWN INDICATION
     Dosage: 12.5 mg each morning, 12.5 mg at noon, and 25 mg at bedtime
     Route: 048
     Dates: start: 2012

REACTIONS (2)
  - Feeling jittery [None]
  - Middle insomnia [None]
